FAERS Safety Report 14294539 (Version 2)
Quarter: 2018Q1

REPORT INFORMATION
  Report Type: Report from Study
  Country: US (occurrence: US)
  Receive Date: 20171218
  Receipt Date: 20180103
  Transmission Date: 20180509
  Serious: Yes (Other)
  Sender: FDA-Public Use
  Company Number: US-AMGEN-USASL2017186707

PATIENT
  Age: 52 Year
  Sex: Female
  Weight: 88.89 kg

DRUGS (4)
  1. ENBREL [Suspect]
     Active Substance: ETANERCEPT
     Indication: RHEUMATOID ARTHRITIS
     Dosage: 50 MG, QWK
     Route: 058
  2. KETOROLAC [Concomitant]
     Active Substance: KETOROLAC\KETOROLAC TROMETHAMINE
     Dosage: 10 MG, UNK
     Route: 048
  3. ORPHENADRINE CITRATE. [Concomitant]
     Active Substance: ORPHENADRINE CITRATE
     Dosage: 100 MG, UNK
     Route: 048
  4. TORADOL [Concomitant]
     Active Substance: KETOROLAC TROMETHAMINE
     Indication: PAIN
     Dosage: 10 MG, AS NECESSARY

REACTIONS (28)
  - Dyspnoea [Unknown]
  - Constipation [Unknown]
  - Insomnia [Unknown]
  - Cough [Unknown]
  - Rheumatoid arthritis [Unknown]
  - Abdominal pain [Unknown]
  - Chest pain [Unknown]
  - Lymphadenopathy [Unknown]
  - Adverse event [Unknown]
  - Dry eye [Unknown]
  - Nasal congestion [Unknown]
  - Muscle spasms [Unknown]
  - Intentional product misuse [Unknown]
  - Treatment noncompliance [Unknown]
  - Myalgia [Unknown]
  - Weight increased [Unknown]
  - Headache [Unknown]
  - Anxiety [Unknown]
  - Protein total increased [Unknown]
  - Loss of personal independence in daily activities [Unknown]
  - Malaise [Unknown]
  - Nausea [Unknown]
  - Sexual dysfunction [Unknown]
  - Depression [Unknown]
  - Body mass index increased [Unknown]
  - Paraesthesia [Unknown]
  - Hypoaesthesia [Unknown]
  - Muscular weakness [Unknown]
